FAERS Safety Report 9119800 (Version 1)
Quarter: 2013Q1

REPORT INFORMATION
  Report Type: Spontaneous
  Country: CA (occurrence: CA)
  Receive Date: 20130226
  Receipt Date: 20130226
  Transmission Date: 20140127
  Serious: Yes (Hospitalization)
  Sender: FDA-Public Use
  Company Number: CA-ELI_LILLY_AND_COMPANY-CA201302007567

PATIENT
  Age: 91 Year
  Sex: Male

DRUGS (11)
  1. FORTEO [Suspect]
     Indication: OSTEOPOROSIS
     Dosage: 20MCG, ONCE DAILY
     Route: 058
     Dates: start: 20110817
  2. ATACAND [Concomitant]
  3. CRESTOR [Concomitant]
  4. PLAVIX [Concomitant]
  5. PROSCAR [Concomitant]
  6. NOVASEN [Concomitant]
  7. D-TABS [Concomitant]
  8. CALCIUM [Concomitant]
  9. NEXIUM [Concomitant]
  10. CENTRUM [Concomitant]
  11. VITALUX [Concomitant]

REACTIONS (2)
  - Loss of consciousness [Not Recovered/Not Resolved]
  - Cystitis [Not Recovered/Not Resolved]
